FAERS Safety Report 18335652 (Version 2)
Quarter: 2020Q4

REPORT INFORMATION
  Report Type: Spontaneous
  Country: US (occurrence: US)
  Receive Date: 20201001
  Receipt Date: 20201211
  Transmission Date: 20210113
  Serious: No
  Sender: FDA-Public Use
  Company Number: US-TEVA-2020-US-1833580

PATIENT
  Age: 64 Year
  Sex: Female

DRUGS (4)
  1. QVAR REDIHALER [Suspect]
     Active Substance: BECLOMETHASONE DIPROPIONATE
     Route: 055
     Dates: start: 20201001
  2. IBUTEROL [Concomitant]
  3. QVAR REDIHALER [Suspect]
     Active Substance: BECLOMETHASONE DIPROPIONATE
     Dosage: DOSE: 2 PUFF TWICE A DAY
     Route: 055
  4. ESTRADIOL. [Concomitant]
     Active Substance: ESTRADIOL
     Route: 062

REACTIONS (7)
  - Extra dose administered [Unknown]
  - Device leakage [Unknown]
  - Device delivery system issue [Unknown]
  - Malaise [Unknown]
  - Device malfunction [Unknown]
  - Blood pressure increased [Recovered/Resolved]
  - Feeling abnormal [Unknown]

NARRATIVE: CASE EVENT DATE: 20200918
